FAERS Safety Report 5271005-6 (Version None)
Quarter: 2007Q1

REPORT INFORMATION
  Report Type: 
  Country: None (occurrence: None)
  Receive Date: 20061214
  Receipt Date: 20060726
  Transmission Date: 20070707
  Serious: Yes (Hospitalization, Other)
  Sender: FDA-Public Use
  Company Number: 2005134743

PATIENT
  Age: 65 Year
  Sex: Male
  Weight: 104.3273 kg

DRUGS (3)
  1. BEXTRA [Suspect]
     Indication: PAIN
     Dosage: 10 MG (10 MG, 1 IN 1 D); UNK
     Dates: start: 20041201
  2. CELEBREX [Suspect]
     Indication: DRUG USE FOR UNKNOWN INDICATION
  3. VIOXX [Suspect]
     Indication: DRUG USE FOR UNKNOWN INDICATION

REACTIONS (1)
  - EMBOLISM [None]
